FAERS Safety Report 8901921 (Version 1)
Quarter: 2012Q4

REPORT INFORMATION
  Report Type: Spontaneous
  Country: US (occurrence: None)
  Receive Date: 20121109
  Receipt Date: 20121109
  Transmission Date: 20130627
  Serious: Yes (Other)
  Sender: FDA-Public Use
  Company Number: None

PATIENT
  Age: 4 Year
  Sex: Male
  Weight: 19.05 kg

DRUGS (2)
  1. GRISEOFULVIN [Suspect]
     Indication: RINGWORM NOS
     Route: 048
     Dates: start: 20121022, end: 20121028
  2. GRISEOFULVIN [Suspect]
     Indication: RINGWORM NOS
     Dates: start: 20121106, end: 20121108

REACTIONS (8)
  - Sleep terror [None]
  - Screaming [None]
  - Vision blurred [None]
  - Flatulence [None]
  - Abdominal discomfort [None]
  - Pollakiuria [None]
  - Enuresis [None]
  - Urinary incontinence [None]
